FAERS Safety Report 10112353 (Version 3)
Quarter: 2014Q2

REPORT INFORMATION
  Report Type: Report from Study
  Country: CA (occurrence: CA)
  Receive Date: 20140425
  Receipt Date: 20140606
  Transmission Date: 20141212
  Serious: Yes (Other)
  Sender: FDA-Public Use
  Company Number: CA-ABBVIE-14P-028-1227159-00

PATIENT
  Sex: Male
  Weight: 72.64 kg

DRUGS (9)
  1. HUMIRA [Suspect]
     Indication: ANKYLOSING SPONDYLITIS
     Route: 058
     Dates: start: 20111124, end: 20140207
  2. HUMIRA [Suspect]
     Dates: start: 2014
  3. MORPHINE [Concomitant]
     Indication: ANKYLOSING SPONDYLITIS
     Route: 048
  4. MORPHINE SULFATE [Concomitant]
     Indication: ANKYLOSING SPONDYLITIS
     Route: 048
  5. CYCLOBENZAPRINE [Concomitant]
     Indication: ANXIETY
     Route: 048
  6. OXAZEPAM [Concomitant]
     Indication: ANXIETY
     Route: 048
  7. OXAZEPAM [Concomitant]
     Indication: SLEEP DISORDER THERAPY
     Route: 048
  8. QUETIAPINE [Concomitant]
     Indication: SLEEP DISORDER THERAPY
     Route: 048
  9. QUETIAPINE [Concomitant]
     Indication: SLEEP DISORDER THERAPY
     Route: 048

REACTIONS (2)
  - Arthropathy [Recovering/Resolving]
  - Incision site infection [Not Recovered/Not Resolved]
